FAERS Safety Report 10057563 (Version 1)
Quarter: 2014Q2

REPORT INFORMATION
  Report Type: Spontaneous
  Country: FR (occurrence: FR)
  Receive Date: 20140404
  Receipt Date: 20140404
  Transmission Date: 20141212
  Serious: Yes (Hospitalization)
  Sender: FDA-Public Use
  Company Number: PHHY2014FR039992

PATIENT
  Age: 81 Year
  Sex: Female

DRUGS (5)
  1. POTASSIUM CHLORIDE [Suspect]
     Indication: HYPOKALAEMIA
  2. OLMETEC [Concomitant]
     Dosage: UNK
     Dates: start: 201105
  3. NICARDIPINE [Concomitant]
  4. CORTICOSTEROIDS [Concomitant]
  5. PROTON PUMP INHIBITORS [Concomitant]

REACTIONS (1)
  - Hypokalaemia [Unknown]
